FAERS Safety Report 5391017-1 (Version None)
Quarter: 2007Q3

REPORT INFORMATION
  Report Type: 
  Country: None (occurrence: None)
  Receive Date: 20070719
  Receipt Date: 20070716
  Transmission Date: 20080115
  Serious: Yes (Hospitalization, Other)
  Sender: FDA-Public Use
  Company Number: US-BAYER-200711738BCC

PATIENT
  Age: 73 Year
  Sex: Male
  Weight: 82 kg

DRUGS (9)
  1. ASPIRIN [Suspect]
     Indication: ISCHAEMIC HEART DISEASE PROPHYLAXIS
     Dosage: TOTAL DAILY DOSE: 325 MG  UNIT DOSE: 325 MG
     Route: 048
     Dates: end: 20060101
  2. ASPIRIN [Suspect]
     Indication: ISCHAEMIC HEART DISEASE PROPHYLAXIS
     Dosage: TOTAL DAILY DOSE: 81 MG  UNIT DOSE: 81 MG
     Route: 048
     Dates: start: 20060101
  3. PLAVIX [Suspect]
     Dosage: TOTAL DAILY DOSE: 75 MG
     Route: 048
     Dates: start: 20020401, end: 20040701
  4. PLAVIX [Suspect]
     Dosage: TOTAL DAILY DOSE: 75 MG
     Route: 048
     Dates: start: 20061201
  5. ALLOPURINOL [Concomitant]
     Dosage: TOTAL DAILY DOSE: 300 MG
     Dates: start: 19720101
  6. LABETALOL HCL [Concomitant]
     Dosage: TOTAL DAILY DOSE: 200 MG
  7. FUROSEMIDE [Concomitant]
     Dosage: TOTAL DAILY DOSE: 40 MG
  8. LIPITOR [Concomitant]
     Dosage: TOTAL DAILY DOSE: 80 MG
     Dates: start: 20040101
  9. GEMFIBROZIL [Concomitant]
     Dosage: TOTAL DAILY DOSE: 1200 MG
     Dates: start: 20040101

REACTIONS (7)
  - CEREBROVASCULAR ACCIDENT [None]
  - COLORECTAL CANCER [None]
  - CORONARY ARTERY BYPASS [None]
  - DIZZINESS [None]
  - HYPOAESTHESIA [None]
  - INGUINAL HERNIA [None]
  - TREMOR [None]
